FAERS Safety Report 4359158-5 (Version None)
Quarter: 2004Q2

REPORT INFORMATION
  Report Type: 
  Country: None (occurrence: None)
  Receive Date: 20040512
  Receipt Date: 20040427
  Transmission Date: 20050107
  Serious: Yes (Hospitalization)
  Sender: FDA-Public Use
  Company Number: USA040466078

PATIENT
  Sex: Female

DRUGS (1)
  1. HUMULIN N [Suspect]

REACTIONS (1)
  - HOSPITALISATION [None]
